FAERS Safety Report 5883439-7 (Version None)
Quarter: 2008Q3

REPORT INFORMATION
  Report Type: 
  Country: None (occurrence: None)
  Receive Date: 20080910
  Receipt Date: 20080902
  Transmission Date: 20090109
  Serious: Yes (Congenital Anomaly, Other)
  Sender: FDA-Public Use
  Company Number: 2008SP017913

PATIENT
  Age: 1 Day

DRUGS (2)
  1. VIRAFERONPEG [Suspect]
     Indication: HEPATITIS C
  2. REBETOL [Suspect]
     Indication: HEPATITIS C

REACTIONS (3)
  - CEREBRAL ATROPHY CONGENITAL [None]
  - FOETAL DISORDER [None]
  - PATERNAL DRUGS AFFECTING FOETUS [None]
